FAERS Safety Report 7065229-5 (Version None)
Quarter: 2010Q4

REPORT INFORMATION
  Report Type: 
  Country: None (occurrence: None)
  Receive Date: 20101027
  Receipt Date: 20101020
  Transmission Date: 20110411
  Serious: Yes (Life-Threatening, Hospitalization, Other)
  Sender: FDA-Public Use
  Company Number: JP-ROCHE-712313

PATIENT
  Sex: Male

DRUGS (7)
  1. AVASTIN [Suspect]
     Indication: LUNG ADENOCARCINOMA
     Route: 041
     Dates: start: 20100416, end: 20100611
  2. CISPLATIN [Concomitant]
     Indication: LUNG ADENOCARCINOMA
     Dosage: DOSAGE IS UNCERTAIN
     Route: 041
     Dates: start: 20100326, end: 20100326
  3. CISPLATIN [Concomitant]
     Dosage: DOSAGE IS UNCERTAIN
     Route: 041
     Dates: start: 20100416, end: 20100416
  4. ALIMTA [Concomitant]
     Dosage: DOSAGE IS UNCERTAIN
     Route: 041
     Dates: start: 20100326, end: 20100326
  5. ALIMTA [Concomitant]
     Dosage: DOSAGE IS UNCERTAIN
     Route: 041
     Dates: start: 20100416, end: 20100416
  6. ALIMTA [Concomitant]
     Dosage: START DATE REPORTED AS: 2010. DOSAGE IS UNCERTAIN
     Route: 041
     Dates: end: 20100611
  7. CARBOPLATIN [Concomitant]
     Route: 041
     Dates: start: 20100611, end: 20100611

REACTIONS (8)
  - DISSEMINATED INTRAVASCULAR COAGULATION [None]
  - GASTRIC ULCER HAEMORRHAGE [None]
  - ISCHAEMIC HEPATITIS [None]
  - MELAENA [None]
  - PANCYTOPENIA [None]
  - RENAL FAILURE ACUTE [None]
  - SHOCK [None]
  - SYNCOPE [None]
